FAERS Safety Report 15782020 (Version 6)
Quarter: 2022Q1

REPORT INFORMATION
  Report Type: Spontaneous
  Country: US (occurrence: US)
  Receive Date: 20190102
  Receipt Date: 20220105
  Transmission Date: 20220423
  Serious: Yes (Other)
  Sender: FDA-Public Use
  Company Number: US-PFIZER INC-2019000205

PATIENT
  Age: 74 Year
  Sex: Female
  Weight: 99.79 kg

DRUGS (8)
  1. XELJANZ XR [Suspect]
     Active Substance: TOFACITINIB CITRATE
     Indication: Rheumatoid arthritis
     Dosage: 11 MG, DAILY (ONE TABLET EVERY DAY)
  2. XELJANZ XR [Suspect]
     Active Substance: TOFACITINIB CITRATE
     Dosage: 11 MG, DAILY
  3. AMLODIPINE BESYLATE [Suspect]
     Active Substance: AMLODIPINE BESYLATE
     Indication: Blood pressure increased
     Dosage: 5 MG, UNK
  4. OMEPRAZOLE [Suspect]
     Active Substance: OMEPRAZOLE
     Indication: Gastrointestinal disorder
     Dosage: 40 MG, UNK
  5. VITAMIN B12 [Suspect]
     Active Substance: CYANOCOBALAMIN
     Indication: Vitamin B12 deficiency
     Dosage: 1000 UG, UNK
  6. ASPIRIN [Suspect]
     Active Substance: ASPIRIN
     Indication: Circulating anticoagulant
     Dosage: 162 MG (81 MG TWO DOSE)
  7. VITAMIN D NOS [Suspect]
     Active Substance: VITAMIN D NOS
     Indication: Vitamin D deficiency
     Dosage: UNK
  8. TYLENOL [Suspect]
     Active Substance: ACETAMINOPHEN
     Dosage: UNK, AS NEEDED (NO MORE THAN 3 TO 4 DAY WHEN NEEDED)

REACTIONS (7)
  - Pneumonia [Recovering/Resolving]
  - Defaecation urgency [Not Recovered/Not Resolved]
  - Illness [Unknown]
  - Abdominal pain lower [Unknown]
  - Vomiting [Unknown]
  - Frequent bowel movements [Unknown]
  - Ligament sprain [Unknown]
